FAERS Safety Report 4316148-6 (Version None)
Quarter: 2004Q1

REPORT INFORMATION
  Report Type: 
  Country: None (occurrence: None)
  Receive Date: 20040311
  Receipt Date: 20040311
  Transmission Date: 20041129
  Serious: No
  Sender: FDA-Public Use
  Company Number: None

PATIENT
  Sex: Female
  Weight: 79.3795 kg

DRUGS (5)
  1. LIPITOR [Suspect]
     Indication: BLOOD CHOLESTEROL INCREASED
     Dosage: 10 MG DAILY ORAL
     Route: 048
     Dates: start: 19990101, end: 20040301
  2. PREMPRO [Concomitant]
  3. PROZAC [Concomitant]
  4. ALLEGRA-D [Concomitant]
  5. XANAX [Concomitant]

REACTIONS (14)
  - BLOOD CREATINE PHOSPHOKINASE ABNORMAL [None]
  - CHEST PAIN [None]
  - DYSPNOEA [None]
  - FATIGUE [None]
  - JOINT STIFFNESS [None]
  - KERATOCONJUNCTIVITIS SICCA [None]
  - MALAISE [None]
  - MYALGIA [None]
  - OEDEMA [None]
  - OESOPHAGEAL PAIN [None]
  - PALPITATIONS [None]
  - PARAESTHESIA [None]
  - POLLAKIURIA [None]
  - SINUSITIS [None]
